FAERS Safety Report 15900120 (Version 1)
Quarter: 2019Q1

REPORT INFORMATION
  Report Type: Spontaneous
  Country: US (occurrence: US)
  Receive Date: 20190109
  Receipt Date: 20190109
  Transmission Date: 20190417
  Serious: No
  Sender: FDA-Public Use
  Company Number: None

PATIENT
  Age: 64 Year
  Sex: Female

DRUGS (6)
  1. IBRANCE [Suspect]
     Active Substance: PALBOCICLIB
     Route: 048
     Dates: start: 20181026
  2. LASIX [Concomitant]
     Active Substance: FUROSEMIDE
  3. LASIX [Concomitant]
     Active Substance: FUROSEMIDE
  4. LETROZOLE. [Concomitant]
     Active Substance: LETROZOLE
  5. ONDANSETRON [Concomitant]
     Active Substance: ONDANSETRON
  6. LETROZOLE TAB 2.5MG [Suspect]
     Active Substance: LETROZOLE
     Dosage: ?          OTHER DOSE:2.5MG;?
     Route: 048
     Dates: start: 20181026

REACTIONS (3)
  - Lip dry [None]
  - Lymphoedema [None]
  - Dry mouth [None]

NARRATIVE: CASE EVENT DATE: 20190109
